FAERS Safety Report 5419449-3 (Version None)
Quarter: 2007Q3

REPORT INFORMATION
  Report Type: 
  Country: None (occurrence: None)
  Receive Date: 20070820
  Receipt Date: 20070808
  Transmission Date: 20080115
  Serious: Yes (Hospitalization)
  Sender: FDA-Public Use
  Company Number: B0482857B

PATIENT
  Sex: Female
  Weight: 2.3 kg

DRUGS (7)
  1. PAROXETINE HCL [Suspect]
     Dosage: 20MG PER DAY
     Dates: start: 20070401, end: 20070614
  2. ORAMORPH SR [Suspect]
     Dosage: 1MGK PER DAY
     Route: 048
     Dates: start: 20070618, end: 20070618
  3. ANAFRANIL [Suspect]
     Dosage: 75MG PER DAY
  4. LEXOMIL [Suspect]
     Dosage: 3MG PER DAY
     Dates: start: 20070401
  5. TRANDATE [Suspect]
     Dosage: 100MG TWICE PER DAY
     Dates: start: 20070323, end: 20070614
  6. LOXEN [Concomitant]
     Dates: start: 20070614, end: 20070614
  7. ASPEGIC 325 [Concomitant]
     Dosage: 100MG PER DAY
     Dates: start: 20070420, end: 20070518

REACTIONS (9)
  - AGITATION NEONATAL [None]
  - APNOEA [None]
  - CYANOSIS [None]
  - DRUG EXPOSURE DURING PREGNANCY [None]
  - DRUG WITHDRAWAL SYNDROME [None]
  - HYPERTONIA [None]
  - MYOCLONUS [None]
  - TACHYPNOEA [None]
  - TREMOR [None]
